FAERS Safety Report 21034573 (Version 1)
Quarter: 2022Q3

REPORT INFORMATION
  Report Type: Report from Study
  Country: PH (occurrence: None)
  Receive Date: 20220701
  Receipt Date: 20220701
  Transmission Date: 20221027
  Serious: Yes (Death)
  Sender: FDA-Public Use
  Company Number: 2022A238179

PATIENT
  Age: 23388 Day
  Sex: Male

DRUGS (1)
  1. TAGRISSO [Suspect]
     Active Substance: OSIMERTINIB
     Indication: Lung neoplasm malignant
     Route: 048
     Dates: start: 202203, end: 202203

REACTIONS (2)
  - Death [Fatal]
  - Chills [Unknown]

NARRATIVE: CASE EVENT DATE: 20220401
